FAERS Safety Report 19295928 (Version 1)
Quarter: 2021Q2

REPORT INFORMATION
  Report Type: Spontaneous
  Country: FR (occurrence: FR)
  Receive Date: 20210524
  Receipt Date: 20210524
  Transmission Date: 20210717
  Serious: Yes (Hospitalization)
  Sender: FDA-Public Use
  Company Number: FR-SUN PHARMACEUTICAL INDUSTRIES LTD-2021RR-297671

PATIENT
  Age: 69 Year
  Sex: Female
  Weight: 65 kg

DRUGS (5)
  1. LEVOFOLINATE DE SODIUM MYLAN [Concomitant]
     Indication: CHEMOTHERAPY SIDE EFFECT PROPHYLAXIS
     Dosage: 249.2 MILLIGRAM, UNK
     Route: 041
     Dates: start: 20210104, end: 20210104
  2. ATROPINE SULFATE AGUETTANT [Concomitant]
     Active Substance: ATROPINE SULFATE
     Indication: CHEMOTHERAPY SIDE EFFECT PROPHYLAXIS
     Dosage: 0.25 MILLIGRAM, UNK
     Route: 058
     Dates: start: 20210104, end: 20210104
  3. OXALIPLATIN. [Suspect]
     Active Substance: OXALIPLATIN
     Indication: PANCREATIC CARCINOMA
     Dosage: 100 MILLIGRAM, UNK
     Route: 041
     Dates: start: 20210104, end: 20210104
  4. MVASI [Concomitant]
     Active Substance: BEVACIZUMAB-AWWB
     Indication: PANCREATIC CARCINOMA
     Dosage: 325 MILLIGRAM, UNK
     Route: 041
     Dates: start: 20210104, end: 20210104
  5. ONDANSETRON ACCORD [Concomitant]
     Active Substance: ONDANSETRON
     Indication: CHEMOTHERAPY SIDE EFFECT PROPHYLAXIS
     Dosage: 8 MILLIGRAM, UNK
     Route: 040
     Dates: start: 20210104, end: 20210104

REACTIONS (1)
  - Infusion related reaction [Recovered/Resolved]

NARRATIVE: CASE EVENT DATE: 20210104
